FAERS Safety Report 15992937 (Version 2)
Quarter: 2019Q1

REPORT INFORMATION
  Report Type: Spontaneous
  Country: AU (occurrence: AU)
  Receive Date: 20190222
  Receipt Date: 20190227
  Transmission Date: 20190418
  Serious: Yes (Hospitalization, Other)
  Sender: FDA-Public Use
  Company Number: AU-AMGEN-AUSSP2019025342

PATIENT
  Age: 92 Year
  Sex: Female

DRUGS (3)
  1. SERETIDE [Concomitant]
     Active Substance: FLUTICASONE PROPIONATE\SALMETEROL XINAFOATE
     Dosage: 250/25 MUG, UNK
  2. FRUSEMIDE [Concomitant]
     Active Substance: FUROSEMIDE
     Dosage: 40 MG, UNK
  3. PROLIA [Suspect]
     Active Substance: DENOSUMAB
     Indication: PRODUCT USED FOR UNKNOWN INDICATION
     Dosage: UNK UNK, Q12MO
     Route: 065

REACTIONS (12)
  - Wheezing [Unknown]
  - Irritability [Unknown]
  - Muscle twitching [Unknown]
  - Mobility decreased [Unknown]
  - Delirium [Unknown]
  - Tetany [Unknown]
  - Confusional state [Unknown]
  - Off label use [Unknown]
  - Fatigue [Unknown]
  - Dehydration [Unknown]
  - Back pain [Unknown]
  - Muscle spasms [Unknown]
